FAERS Safety Report 22814091 (Version 4)
Quarter: 2024Q1

REPORT INFORMATION
  Report Type: Other
  Country: US (occurrence: None)
  Receive Date: 20230811
  Receipt Date: 20240208
  Transmission Date: 20240410
  Serious: Yes (Hospitalization)
  Sender: FDA-Public Use
  Company Number: US-ROCHE-3401348

PATIENT
  Age: 66 Year
  Sex: Female

DRUGS (2)
  1. OCREVUS [Suspect]
     Active Substance: OCRELIZUMAB
     Indication: Relapsing multiple sclerosis
     Dosage: INFUSE 300MG IV ON DAY ONE AND DAY 15 DATE OF TREATMENT: 28/DEC/2021?DATE OF NEXT INFUSION: 29/JUN/2
     Route: 042
     Dates: start: 20180702
  2. OCREVUS [Suspect]
     Active Substance: OCRELIZUMAB
     Indication: Primary progressive multiple sclerosis
     Dosage: 300MG ON DAY 1 AND 300MG ON DAY 15
     Route: 042
     Dates: start: 20190814

REACTIONS (4)
  - Pneumonia [Not Recovered/Not Resolved]
  - COVID-19 [Unknown]
  - Multiple sclerosis [Not Recovered/Not Resolved]
  - Immunodeficiency [Not Recovered/Not Resolved]

NARRATIVE: CASE EVENT DATE: 20230501
